FAERS Safety Report 11842788 (Version 1)
Quarter: 2015Q4

REPORT INFORMATION
  Report Type: Spontaneous
  Country: IT (occurrence: IT)
  Receive Date: 20151216
  Receipt Date: 20151216
  Transmission Date: 20160305
  Serious: Yes (Hospitalization)
  Sender: FDA-Public Use
  Company Number: IT-PFIZER INC-2015437559

PATIENT
  Age: 89 Year
  Sex: Female

DRUGS (5)
  1. RIFACOL [Concomitant]
     Active Substance: RIFAXIMIN
     Dosage: UNK
     Route: 048
  2. DOXAZOSIN MESILATE [Suspect]
     Active Substance: DOXAZOSIN MESYLATE
     Indication: HYPERTENSION
     Dosage: 2 MG, ONE DOSE
     Route: 048
     Dates: start: 20150523, end: 20150523
  3. LASIX [Concomitant]
     Active Substance: FUROSEMIDE
     Dosage: 25 MG, UNK
     Route: 048
  4. IRBESARTAN. [Concomitant]
     Active Substance: IRBESARTAN
     Dosage: 300 MG, UNK
     Route: 048
  5. LERCANIDIPINA [Concomitant]
     Active Substance: LERCANIDIPINE
     Dosage: 20 MG, UNK
     Route: 048

REACTIONS (3)
  - Hyperhidrosis [Recovered/Resolved]
  - Presyncope [Recovered/Resolved]
  - Orthostatic hypotension [Recovered/Resolved]

NARRATIVE: CASE EVENT DATE: 20150523
